FAERS Safety Report 6380241-7 (Version None)
Quarter: 2009Q3

REPORT INFORMATION
  Report Type: 
  Country: None (occurrence: None)
  Receive Date: 20090929
  Receipt Date: 20090831
  Transmission Date: 20100115
  Serious: Yes (Disabling)
  Sender: FDA-Public Use
  Company Number: NZ-ASTRAZENECA-2009SE14438

PATIENT
  Age: 15758 Day
  Sex: Female

DRUGS (3)
  1. LIGNOCAINE [Suspect]
     Indication: ENTHESOPATHY
     Dosage: ONCE/SINGLE ADMINISTRATION
     Route: 030
     Dates: start: 19970101, end: 19980227
  2. TRIAMCINOLONE [Suspect]
     Indication: ENTHESOPATHY
     Dates: start: 19970101, end: 19980227
  3. CARBAMAZEPINE [Concomitant]
     Indication: EPILEPSY
     Dosage: DAILY
     Route: 048

REACTIONS (5)
  - INSOMNIA [None]
  - INTRACRANIAL PRESSURE INCREASED [None]
  - MYASTHENIC SYNDROME [None]
  - VERTIGO [None]
  - VISION BLURRED [None]
